FAERS Safety Report 10007270 (Version 1)
Quarter: 2014Q1

REPORT INFORMATION
  Report Type: Spontaneous
  Country: US (occurrence: US)
  Receive Date: 20140313
  Receipt Date: 20140313
  Transmission Date: 20141002
  Serious: Yes (Other)
  Sender: FDA-Public Use
  Company Number: US-BAYER-2014-036469

PATIENT
  Age: 30 Year
  Sex: Female

DRUGS (3)
  1. MIRENA [Suspect]
     Indication: CONTRACEPTION
     Dosage: DAILY DOSE 20 ?G
     Route: 015
     Dates: start: 200903, end: 20140305
  2. MIRENA [Interacting]
     Indication: CONTRACEPTION
     Dosage: 20 ?G/D, CONT
     Route: 015
     Dates: start: 20140305
  3. TOPAMAX [Interacting]
     Indication: MIGRAINE
     Dosage: UNK
     Dates: start: 201106

REACTIONS (7)
  - Pregnancy with contraceptive device [None]
  - Malaise [None]
  - Abortion spontaneous [Unknown]
  - Human chorionic gonadotropin decreased [Unknown]
  - Accident [None]
  - Migraine [Not Recovered/Not Resolved]
  - Labelled drug-drug interaction medication error [Not Recovered/Not Resolved]
